FAERS Safety Report 8511478-6 (Version None)
Quarter: 2012Q3

REPORT INFORMATION
  Report Type: 
  Country: None (occurrence: None)
  Receive Date: 20120711
  Receipt Date: 20120711
  Transmission Date: 20120928
  Serious: No
  Sender: FDA-Public Use
  Company Number: None

PATIENT
  Age: 60 Year
  Sex: Female
  Weight: 58.6 kg

DRUGS (1)
  1. THYMOGLOBULIN [Suspect]
     Indication: RENAL AND PANCREAS TRANSPLANT
     Dosage: 75 MG ONCE IV
     Route: 042
     Dates: start: 20120709, end: 20120709

REACTIONS (2)
  - EPISTAXIS [None]
  - PLATELET COUNT DECREASED [None]
